FAERS Safety Report 7204325-6 (Version None)
Quarter: 2010Q4

REPORT INFORMATION
  Report Type: 
  Country: None (occurrence: None)
  Receive Date: 20101230
  Receipt Date: 20101220
  Transmission Date: 20110411
  Serious: Yes (Other)
  Sender: FDA-Public Use
  Company Number: US-JNJCH-2010029605

PATIENT
  Sex: Male
  Weight: 75.8 kg

DRUGS (6)
  1. BENADRYL [Suspect]
     Indication: DRUG ABUSE
     Dosage: TEXT:UNKNOWN
     Route: 048
  2. SUDAFED 12 HOUR [Concomitant]
     Indication: PRODUCT USED FOR UNKNOWN INDICATION
     Dosage: TEXT:UNKNOWN
     Route: 065
  3. TRAMADOL HCL [Concomitant]
     Indication: PAIN
     Dosage: TEXT:INCONSISTENTLY
     Route: 065
  4. KLONOPIN [Concomitant]
     Indication: PRODUCT USED FOR UNKNOWN INDICATION
     Dosage: TEXT:UNKNOWN
     Route: 065
  5. ATIVAN [Concomitant]
     Indication: PRODUCT USED FOR UNKNOWN INDICATION
     Dosage: TEXT:UNKNOWN
     Route: 065
  6. MYLANTA PLUS [Concomitant]
     Indication: PRODUCT USED FOR UNKNOWN INDICATION
     Dosage: TEXT:UNKNOWN
     Route: 065

REACTIONS (1)
  - DRUG ABUSE [None]
